FAERS Safety Report 6398597-8 (Version None)
Quarter: 2009Q4

REPORT INFORMATION
  Report Type: 
  Country: None (occurrence: None)
  Receive Date: 20091013
  Receipt Date: 20091006
  Transmission Date: 20100525
  Serious: Yes (Hospitalization)
  Sender: FDA-Public Use
  Company Number: US-ABBOTT-09P-163-0595057-00

PATIENT
  Sex: Male
  Weight: 84.444 kg

DRUGS (9)
  1. HUMIRA [Suspect]
     Indication: RHEUMATOID ARTHRITIS
     Dates: start: 20030507, end: 20090806
  2. METHOTREXATE [Suspect]
     Indication: DRUG USE FOR UNKNOWN INDICATION
     Dosage: NOT REPORTED
     Dates: end: 20090728
  3. PRINIVIL [Concomitant]
     Indication: HYPERTENSION
     Dosage: UNKNOWN
  4. VITAMINS [Concomitant]
     Indication: VITAMIN SUPPLEMENTATION
  5. LEUCOVORIN CALCIUM [Concomitant]
     Indication: DRUG USE FOR UNKNOWN INDICATION
     Dosage: UNKNOWN
  6. ALPRAZOLAM [Concomitant]
     Indication: ANXIETY
     Dosage: UNKNOWN
  7. MOBIC [Concomitant]
     Indication: ANTIINFLAMMATORY THERAPY
     Dosage: UNKNOWN
  8. ASPIRIN [Concomitant]
     Indication: DRUG USE FOR UNKNOWN INDICATION
     Dosage: UNKNOWN
  9. HYDROCODONE [Concomitant]
     Indication: PAIN
     Dosage: UNKNOWN

REACTIONS (3)
  - LUNG DISORDER [None]
  - RESPIRATORY FAILURE [None]
  - STAPHYLOCOCCAL INFECTION [None]
